FAERS Safety Report 26201051 (Version 1)
Quarter: 2025Q4

REPORT INFORMATION
  Report Type: Spontaneous
  Country: US (occurrence: US)
  Receive Date: 20251226
  Receipt Date: 20251226
  Transmission Date: 20260117
  Serious: No
  Sender: ELI LILLY AND COMPANY
  Company Number: US-ELI_LILLY_AND_COMPANY-US202512026329

PATIENT
  Age: 49 Year
  Sex: Female

DRUGS (4)
  1. EMGALITY [Suspect]
     Active Substance: GALCANEZUMAB-GNLM
     Indication: Migraine
     Dosage: LOADING DOSE OF TWO EMGALITY INJECTIONS
     Route: 058
     Dates: start: 20251218
  2. EMGALITY [Suspect]
     Active Substance: GALCANEZUMAB-GNLM
     Indication: Migraine
     Dosage: LOADING DOSE OF TWO EMGALITY INJECTIONS
     Route: 058
     Dates: start: 20251218
  3. EMGALITY [Suspect]
     Active Substance: GALCANEZUMAB-GNLM
     Dosage: LOADING DOSE OF TWO EMGALITY INJECTIONS
     Route: 058
     Dates: start: 20251218
  4. EMGALITY [Suspect]
     Active Substance: GALCANEZUMAB-GNLM
     Dosage: LOADING DOSE OF TWO EMGALITY INJECTIONS
     Route: 058
     Dates: start: 20251218

REACTIONS (2)
  - Injection site pain [Recovered/Resolved]
  - Incorrect dose administered by device [Unknown]

NARRATIVE: CASE EVENT DATE: 20251218
